FAERS Safety Report 4505386-5 (Version None)
Quarter: 2004Q4

REPORT INFORMATION
  Report Type: 
  Country: None (occurrence: None)
  Receive Date: 20041116
  Receipt Date: 20041101
  Transmission Date: 20050328
  Serious: No
  Sender: FDA-Public Use
  Company Number: 2004GB02288

PATIENT
  Age: 57 Year
  Sex: Female

DRUGS (2)
  1. ARIMIDEX [Suspect]
     Indication: BREAST CANCER STAGE III
     Dosage: 1 MG DAILY PO
     Route: 048
     Dates: start: 20030915
  2. DOVOBET [Concomitant]

REACTIONS (1)
  - PURPURA [None]
